FAERS Safety Report 5157560-5 (Version None)
Quarter: 2006Q4

REPORT INFORMATION
  Report Type: 
  Country: None (occurrence: None)
  Receive Date: 20061127
  Receipt Date: 20061116
  Transmission Date: 20070319
  Serious: Yes (Other)
  Sender: FDA-Public Use
  Company Number: IL-GLAXOSMITHKLINE-B0447832A

PATIENT
  Sex: Female

DRUGS (2)
  1. SEROXAT [Suspect]
     Indication: DRUG USE FOR UNKNOWN INDICATION
     Route: 065
  2. CITALOPRAM HYDROBROMIDE [Suspect]
     Route: 065

REACTIONS (3)
  - LIBIDO DECREASED [None]
  - LOSS OF CONSCIOUSNESS [None]
  - MOOD ALTERED [None]
